FAERS Safety Report 10220938 (Version 1)
Quarter: 2014Q2

REPORT INFORMATION
  Report Type: Spontaneous
  Country: SE (occurrence: SE)
  Receive Date: 20140606
  Receipt Date: 20140606
  Transmission Date: 20141212
  Serious: Yes (Hospitalization)
  Sender: FDA-Public Use
  Company Number: SE-009507513-1405SWE015177

PATIENT
  Age: 20 Year
  Sex: Female

DRUGS (5)
  1. NEXPLANON [Suspect]
     Indication: CONTRACEPTION
     Dosage: UNK
     Route: 059
     Dates: start: 20140131
  2. IMPLANON [Concomitant]
     Dosage: UNK
     Route: 059
     Dates: start: 201311, end: 201401
  3. LORATADINE [Concomitant]
     Route: 048
  4. SINGULAIR [Concomitant]
     Route: 048
  5. BRICANYL [Concomitant]

REACTIONS (7)
  - Heart rate increased [Not Recovered/Not Resolved]
  - Peripheral swelling [Not Recovered/Not Resolved]
  - Pain in extremity [Recovered/Resolved]
  - Implant site pruritus [Not Recovered/Not Resolved]
  - Fatigue [Recovered/Resolved]
  - Dyspnoea [Recovered/Resolved]
  - Feeling hot [Recovered/Resolved]
